FAERS Safety Report 18117675 (Version 1)
Quarter: 2020Q3

REPORT INFORMATION
  Report Type: Spontaneous
  Country: US (occurrence: US)
  Receive Date: 20200806
  Receipt Date: 20200806
  Transmission Date: 20201103
  Serious: Yes (Hospitalization)
  Sender: FDA-Public Use
  Company Number: US-CLOVIS ONCOLOGY-CLO-2020-000808

PATIENT
  Age: 49 Year
  Sex: Female

DRUGS (5)
  1. RUBRACA [Suspect]
     Active Substance: RUCAPARIB CAMSYLATE
     Dosage: 600 MG, BID
     Route: 048
     Dates: start: 202004
  2. RUBRACA [Suspect]
     Active Substance: RUCAPARIB CAMSYLATE
     Dosage: 600 MG, BID
     Route: 048
     Dates: start: 202002, end: 202007
  3. OMEPRAZOLE. [Concomitant]
     Active Substance: OMEPRAZOLE
     Indication: OVARIAN CANCER
     Dosage: 20 MG, UNK
  4. RUBRACA [Suspect]
     Active Substance: RUCAPARIB CAMSYLATE
     Dosage: 600 MG, BID
     Route: 048
     Dates: start: 202007
  5. RUBRACA [Suspect]
     Active Substance: RUCAPARIB CAMSYLATE
     Indication: OVARIAN CANCER
     Dosage: 300 MG, BID
     Route: 048
     Dates: start: 202002, end: 202004

REACTIONS (6)
  - Constipation [Not Recovered/Not Resolved]
  - Lethargy [Recovering/Resolving]
  - Pulmonary thrombosis [Recovering/Resolving]
  - Pain [Recovered/Resolved]
  - Dysgeusia [Not Recovered/Not Resolved]
  - Fatigue [Recovering/Resolving]

NARRATIVE: CASE EVENT DATE: 2020
